FAERS Safety Report 5270093-0 (Version None)
Quarter: 2007Q1

REPORT INFORMATION
  Report Type: 
  Country: None (occurrence: None)
  Receive Date: 20061213
  Receipt Date: 20051011
  Transmission Date: 20070707
  Serious: Yes (Hospitalization)
  Sender: FDA-Public Use
  Company Number: 2005UW15219

PATIENT
  Age: 43 Year
  Sex: Female
  Weight: 59.874 kg

DRUGS (1)
  1. NOLVADEX [Suspect]
     Indication: BREAST CANCER
     Dates: start: 20020501

REACTIONS (2)
  - OVARIAN CYST [None]
  - UTERINE LEIOMYOMA [None]
